FAERS Safety Report 8296104 (Version 2)
Quarter: 2012Q4

REPORT INFORMATION
  Report Type: 
  Country: US (occurrence: US)
  Receive Date: 20111216
  Receipt Date: 20121218
  Transmission Date: 20130627
  Serious: No
  Sender: FDA-Public Use
  Company Number: US-BRISTOL-MYERS SQUIBB COMPANY-16096380

PATIENT
  Age: 62 Year
  Sex: Female

DRUGS (2)
  1. ABILIFY TABS 2 MG [Suspect]
     Indication: MAJOR DEPRESSION
     Dosage: packed in bottle
Morning
     Route: 048
     Dates: start: 20110519
  2. ZOLOFT [Concomitant]
     Route: 048
     Dates: start: 20040403

REACTIONS (2)
  - Haematochezia [Unknown]
  - Diarrhoea [Unknown]
